FAERS Safety Report 9691097 (Version 2)
Quarter: 2013Q4

REPORT INFORMATION
  Report Type: Spontaneous
  Country: CH (occurrence: CH)
  Receive Date: 20131115
  Receipt Date: 20131127
  Transmission Date: 20140711
  Serious: Yes (Other)
  Sender: FDA-Public Use
  Company Number: CH-JNJFOC-20131102677

PATIENT
  Age: 7 Year
  Sex: Male

DRUGS (2)
  1. RISPERDAL [Suspect]
     Indication: FOETAL ALCOHOL SYNDROME
     Dosage: STRENGTH- 1MG/ML
     Route: 048
     Dates: start: 20110204
  2. NOZINAN [Suspect]
     Indication: FOETAL ALCOHOL SYNDROME
     Route: 048
     Dates: start: 20121201, end: 201303

REACTIONS (4)
  - Hyperprolactinaemia [Unknown]
  - Weight increased [Unknown]
  - Abnormal behaviour [Recovered/Resolved]
  - Off label use [Unknown]
